FAERS Safety Report 22078330 (Version 3)
Quarter: 2023Q1

REPORT INFORMATION
  Report Type: Spontaneous
  Country: DE (occurrence: DE)
  Receive Date: 20230309
  Receipt Date: 20230321
  Transmission Date: 20230417
  Serious: Yes (Congenital Anomaly, Other)
  Sender: FDA-Public Use
  Company Number: DE-EMBRYOTOX-202118564

PATIENT
  Age: 4 Week
  Sex: Male
  Weight: 3.18 kg

DRUGS (4)
  1. PANTOPRAZOLE [Suspect]
     Active Substance: PANTOPRAZOLE
     Indication: Gastrooesophageal reflux disease
     Dosage: 40 MILLIGRAM, QD(0. - 39.2. GESTATIONAL WEEK)
     Route: 064
     Dates: start: 20210909, end: 20220611
  2. VENLAFAXINE HCL [Suspect]
     Active Substance: VENLAFAXINE HYDROCHLORIDE
     Indication: Depression
     Dosage: 112.5 MILLIGRAM, QD(0. - 31.1. GESTATIONAL WEEK)
     Route: 064
  3. AMITRIPTYLINE [Suspect]
     Active Substance: AMITRIPTYLINE
     Indication: Sleep disorder
     Dosage: 50 MILLIGRAM, QD(0. - 31.1. GESTATIONAL WEEK)
     Route: 064
  4. COMIRNATY [Concomitant]
     Active Substance: TOZINAMERAN
     Indication: COVID-19 immunisation
     Dosage: UNK(17.1. - 17.1. GESTATIONAL WEEK)
     Route: 064
     Dates: start: 20220107, end: 20220107

REACTIONS (3)
  - Maternal exposure during pregnancy [Unknown]
  - Pulmonary artery stenosis congenital [Unknown]
  - Atrial septal defect [Unknown]

NARRATIVE: CASE EVENT DATE: 20220601
